FAERS Safety Report 13459507 (Version 3)
Quarter: 2021Q1

REPORT INFORMATION
  Report Type: Spontaneous
  Country: PT (occurrence: PT)
  Receive Date: 20170419
  Receipt Date: 20210211
  Transmission Date: 20210419
  Serious: Yes (Hospitalization, Other)
  Sender: FDA-Public Use
  Company Number: PT-BAUSCH-BL-2017-010363

PATIENT
  Age: 71 Year
  Sex: Female

DRUGS (3)
  1. METRONIDAZOLE. [Suspect]
     Active Substance: METRONIDAZOLE
  2. WARFARIN SODIUM. [Suspect]
     Active Substance: WARFARIN SODIUM
     Indication: ANTICOAGULANT THERAPY
     Route: 048
  3. CLARITHROMYCIN. [Concomitant]
     Active Substance: CLARITHROMYCIN
     Indication: HELICOBACTER INFECTION

REACTIONS (7)
  - Pulmonary alveolar haemorrhage [Recovering/Resolving]
  - Shock [Recovering/Resolving]
  - Subcapsular renal haematoma [Recovering/Resolving]
  - Inflammatory marker increased [Recovering/Resolving]
  - Nausea [Recovering/Resolving]
  - Haemorrhagic diathesis [Recovering/Resolving]
  - Vomiting [Recovering/Resolving]
